FAERS Safety Report 7434714-6 (Version None)
Quarter: 2011Q2

REPORT INFORMATION
  Report Type: 
  Country: None (occurrence: None)
  Receive Date: 20110425
  Receipt Date: 20110418
  Transmission Date: 20111010
  Serious: Yes (Death)
  Sender: FDA-Public Use
  Company Number: US-PFIZER INC-2011054630

PATIENT
  Sex: Male

DRUGS (3)
  1. XANAX [Concomitant]
     Indication: ANXIETY
     Dosage: 0.25 MG, EVERY 6 HOURS AS NEEDED
     Route: 048
  2. PRISTIQ [Suspect]
     Indication: DEPRESSION
     Dosage: 50MG DAILY, ONLY TOOK 3 PILLS
     Route: 048
     Dates: start: 20110201, end: 20110205
  3. ZOLPIDEM [Concomitant]
     Indication: INSOMNIA
     Dosage: 10 MG, HS PRN
     Route: 048

REACTIONS (1)
  - COMPLETED SUICIDE [None]
